FAERS Safety Report 5941476-8 (Version None)
Quarter: 2008Q4

REPORT INFORMATION
  Report Type: 
  Country: None (occurrence: None)
  Receive Date: 20081103
  Receipt Date: 20081103
  Transmission Date: 20090506
  Serious: Yes (Death)
  Sender: FDA-Public Use
  Company Number: None

PATIENT
  Sex: Female

DRUGS (2)
  1. CLOFARABINE [Suspect]
     Indication: STEM CELL TRANSPLANT
     Dosage: 64 MG DAILY IV DRIP
     Route: 041
     Dates: start: 20080917, end: 20080921
  2. CAMPATH [Suspect]
     Dosage: 20 MG DAILY IV DRIP
     Route: 041
     Dates: start: 20080917, end: 20080921

REACTIONS (11)
  - ASTHENIA [None]
  - CONFUSIONAL STATE [None]
  - DIALYSIS [None]
  - HYPOTENSION [None]
  - LOSS OF CONSCIOUSNESS [None]
  - PYREXIA [None]
  - RENAL FAILURE ACUTE [None]
  - RENAL IMPAIRMENT [None]
  - RESPIRATORY DISORDER [None]
  - SEPSIS [None]
  - SEPTIC SHOCK [None]
